FAERS Safety Report 19109589 (Version 1)
Quarter: 2021Q2

REPORT INFORMATION
  Report Type: Other
  Country: GB (occurrence: GB)
  Receive Date: 20210409
  Receipt Date: 20210409
  Transmission Date: 20210717
  Serious: No
  Sender: FDA-Public Use
  Company Number: GB-LUPIN PHARMACEUTICALS INC.-2021-04391

PATIENT
  Age: 32 Year
  Sex: Female
  Weight: 62 kg

DRUGS (2)
  1. SERTRALINE [Suspect]
     Active Substance: SERTRALINE HYDROCHLORIDE
     Dosage: UNK
     Route: 048
  2. SERTRALINE [Suspect]
     Active Substance: SERTRALINE HYDROCHLORIDE
     Indication: ILL-DEFINED DISORDER
     Dosage: 50 MILLIGRAM, UNK
     Route: 048
     Dates: start: 20200719

REACTIONS (2)
  - Product use in unapproved indication [Unknown]
  - Alopecia [Not Recovered/Not Resolved]
